FAERS Safety Report 6234199-1 (Version None)
Quarter: 2009Q2

REPORT INFORMATION
  Report Type: 
  Country: None (occurrence: None)
  Receive Date: 20090618
  Receipt Date: 20090506
  Transmission Date: 20091009
  Serious: Yes (Death, Hospitalization)
  Sender: FDA-Public Use
  Company Number: US-JNJFOC-20090605203

PATIENT
  Age: 61 Year
  Sex: Female

DRUGS (4)
  1. DURAGESIC-100 [Suspect]
     Indication: ABDOMINAL PAIN
     Route: 062
  2. FENTANYL CITRATE [Suspect]
     Indication: ABDOMINAL PAIN
     Route: 042
  3. MORPHINE [Suspect]
     Route: 042
  4. MORPHINE [Suspect]
     Indication: ABDOMINAL PAIN
     Route: 042

REACTIONS (5)
  - ABDOMINAL PAIN [None]
  - COLON CANCER [None]
  - CONFUSIONAL STATE [None]
  - SEDATION [None]
  - SOMNOLENCE [None]
